FAERS Safety Report 6405280-9 (Version None)
Quarter: 2009Q4

REPORT INFORMATION
  Report Type: 
  Country: None (occurrence: None)
  Receive Date: 20091016
  Receipt Date: 20091016
  Transmission Date: 20100525
  Serious: Yes (Life-Threatening)
  Sender: FDA-Public Use
  Company Number: None

PATIENT
  Sex: Female
  Weight: 56.6996 kg

DRUGS (1)
  1. AVELOX [Suspect]
     Indication: CYSTITIS
     Dosage: 2 TABLETS
     Dates: start: 20091002, end: 20091003

REACTIONS (5)
  - DIZZINESS [None]
  - HALLUCINATION [None]
  - MALAISE [None]
  - NAUSEA [None]
  - VOMITING [None]
